FAERS Safety Report 26154868 (Version 1)
Quarter: 2025Q4

REPORT INFORMATION
  Report Type: Spontaneous
  Country: CN (occurrence: CN)
  Receive Date: 20251215
  Receipt Date: 20251215
  Transmission Date: 20260118
  Serious: Yes (Hospitalization)
  Sender: SANOFI AVENTIS
  Company Number: CN-DialogSolutions-SAAVPROD-PI853522-C1

PATIENT
  Age: 53 Year
  Sex: Male

DRUGS (5)
  1. OXALIPLATIN [Interacting]
     Active Substance: OXALIPLATIN
     Indication: Rectal cancer
     Dosage: 150 MG, QCY
  2. AMLODIPINE BESYLATE [Interacting]
     Active Substance: AMLODIPINE BESYLATE
     Dosage: 5 MG, QD
     Route: 048
  3. FLUOROURACIL [Interacting]
     Active Substance: FLUOROURACIL
     Indication: Rectal cancer
     Dosage: 0.6 G, QCY
     Route: 042
  4. FLUOROURACIL [Interacting]
     Active Substance: FLUOROURACIL
     Dosage: 4.2G CONTINUOUS PUMPING FOR 46 HOURS
     Route: 042
  5. LEUCOVORIN CALCIUM [Interacting]
     Active Substance: LEUCOVORIN CALCIUM
     Indication: Rectal cancer
     Dosage: 600 MG, QCY

REACTIONS (5)
  - Electrocardiogram abnormal [Recovered/Resolved]
  - Abdominal distension [Recovered/Resolved]
  - Drug interaction [Recovered/Resolved]
  - Bundle branch block right [Recovered/Resolved]
  - Sinus arrhythmia [Recovered/Resolved]
